FAERS Safety Report 5016753-8 (Version None)
Quarter: 2006Q2

REPORT INFORMATION
  Report Type: 
  Country: None (occurrence: None)
  Receive Date: 20060602
  Receipt Date: 20060522
  Transmission Date: 20061013
  Serious: Yes (Death, Other)
  Sender: FDA-Public Use
  Company Number: US-JNJFOC-20060303347

PATIENT
  Sex: Male
  Weight: 113.4 kg

DRUGS (22)
  1. DURAGESIC-100 [Suspect]
     Route: 062
  2. BIAXIN [Interacting]
     Indication: MYCOBACTERIUM AVIUM COMPLEX INFECTION
     Route: 048
  3. BIAXIN [Interacting]
     Indication: ACID FAST BACILLI INFECTION
     Route: 048
  4. NORVASC [Concomitant]
     Indication: HYPERTENSION
     Route: 048
  5. LIPITOR [Concomitant]
     Route: 048
  6. LIPITOR [Concomitant]
     Route: 048
  7. ETHAMBUTOL [Concomitant]
     Indication: MYCOBACTERIUM AVIUM COMPLEX INFECTION
  8. AMIKACIN [Concomitant]
     Indication: BACTERIAL INFECTION
     Route: 042
  9. PRIMAXIN [Concomitant]
     Route: 042
  10. PRIMAXIN [Concomitant]
     Indication: BACTERIAL INFECTION
     Route: 042
  11. UNASYN [Concomitant]
     Route: 042
  12. UNASYN [Concomitant]
     Indication: BACTERIAL INFECTION
     Route: 042
  13. DEMEROL [Concomitant]
     Indication: PAIN
     Route: 030
  14. PERCOCET [Concomitant]
     Route: 048
  15. PERCOCET [Concomitant]
     Indication: PAIN
     Dosage: OXYCODONE 5 MG/ACETAMINOPHEN 325 MG, 1 TO 2 TABLETS EVERY 4 TO 6 HOURS AS NEEDED, ORAL
     Route: 048
  16. VANCOMYCIN [Concomitant]
     Indication: BACTERIAL INFECTION
     Route: 042
  17. ANCEF [Concomitant]
     Indication: BACTERIAL INFECTION
     Route: 042
  18. TYLENOL (GELTAB) [Concomitant]
     Dosage: 650 MG, EVERY 4 HOURS AS NEEDED, ORAL
     Route: 048
  19. ZOFRAN [Concomitant]
     Dosage: EVERY 6 HOURS AS NEEDED, INTRAVENOUS
     Route: 042
  20. MORPHINE [Concomitant]
     Indication: BREAKTHROUGH PAIN
     Dosage: 2 TO 6 MG EVERY 4 HOURS AS NEEDED, INTRAVENOUS/INTRAMUSCULAR
     Route: 042
  21. GRANISETRON  HCL [Concomitant]
     Dosage: 100 UG EVERY 12 TO 24 HOURS AS NEEDED, INTRAVENOUS
     Route: 042
  22. CEFAZOLIN [Concomitant]
     Route: 042

REACTIONS (6)
  - CIRCULATORY COLLAPSE [None]
  - DRUG INTERACTION [None]
  - DRUG TOXICITY [None]
  - HYPERTENSIVE HEART DISEASE [None]
  - RESPIRATORY ARREST [None]
  - SUDDEN DEATH [None]
